FAERS Safety Report 6833783-1 (Version None)
Quarter: 2010Q3

REPORT INFORMATION
  Report Type: 
  Country: None (occurrence: None)
  Receive Date: 20100712
  Receipt Date: 20070403
  Transmission Date: 20110219
  Serious: No
  Sender: FDA-Public Use
  Company Number: US-PFIZER INC-2007027527

PATIENT
  Sex: Female
  Weight: 90.72 kg

DRUGS (7)
  1. CHANTIX [Suspect]
     Indication: SMOKING CESSATION THERAPY
     Dates: start: 20070326
  2. BENICAR [Concomitant]
  3. LOPRESSOR [Concomitant]
  4. LOTREL [Concomitant]
  5. POTASSIUM [Concomitant]
  6. SPIRIVA [Concomitant]
  7. LASIX [Concomitant]

REACTIONS (1)
  - NAUSEA [None]
